FAERS Safety Report 12099811 (Version 1)
Quarter: 2016Q1

REPORT INFORMATION
  Report Type: Spontaneous
  Country: US (occurrence: None)
  Receive Date: 20160219
  Receipt Date: 20160219
  Transmission Date: 20160526
  Serious: Yes (Other)
  Sender: FDA-Public Use
  Company Number: None

PATIENT
  Age: 40 Year
  Sex: Female

DRUGS (2)
  1. WARFARIN 3 MG AND 5 MG (8 MG DAILY) UPSHE R SMITH [Suspect]
     Active Substance: WARFARIN
     Dosage: 3MG AND 5 MG, DAILY, ORAL
     Route: 048
  2. CLINDAMYCIN 300 MG CAPSULE RANBAXY PHARMAC . [Suspect]
     Active Substance: CLINDAMYCIN PHOSPHATE
     Route: 048

REACTIONS (2)
  - International normalised ratio increased [None]
  - Drug interaction [None]

NARRATIVE: CASE EVENT DATE: 20160127
